APPROVED DRUG PRODUCT: DIPHENHYDRAMINE HYDROCHLORIDE
Active Ingredient: DIPHENHYDRAMINE HYDROCHLORIDE
Strength: 50MG/ML
Dosage Form/Route: INJECTABLE;INJECTION
Application: A218448 | Product #001 | TE Code: AP
Applicant: GLAND PHARMA LTD
Approved: Mar 20, 2024 | RLD: No | RS: No | Type: RX